FAERS Safety Report 12494657 (Version 1)
Quarter: 2016Q2

REPORT INFORMATION
  Report Type: Spontaneous
  Country: US (occurrence: US)
  Receive Date: 20160624
  Receipt Date: 20160624
  Transmission Date: 20160815
  Serious: No
  Sender: FDA-Public Use
  Company Number: US-OCTA-GAM15316US

PATIENT
  Sex: Female
  Weight: 59 kg

DRUGS (1)
  1. OCTAGAM IMMUNE GLOBULIN (HUMAN) [Suspect]
     Active Substance: HUMAN IMMUNOGLOBULIN G
     Indication: HYPOGAMMAGLOBULINAEMIA
     Dosage: 25 G EVERY 28 DAYS
     Route: 042
     Dates: start: 20160405, end: 20160405

REACTIONS (1)
  - Myalgia [Recovered/Resolved]
